FAERS Safety Report 9790143 (Version 4)
Quarter: 2014Q2

REPORT INFORMATION
  Report Type: Report from Study
  Country: FR (occurrence: FR)
  Receive Date: 20131231
  Receipt Date: 20140627
  Transmission Date: 20141212
  Serious: Yes (Hospitalization, Disabling)
  Sender: FDA-Public Use
  Company Number: FR-ROCHE-1307589

PATIENT
  Age: 29 Year
  Sex: Female
  Weight: 104 kg

DRUGS (4)
  1. VEMURAFENIB [Suspect]
     Indication: MALIGNANT MELANOMA
     Dosage: LAST DOSE PRIOR TO SAE: 17/NOV/2013
     Route: 048
     Dates: start: 20131108, end: 20131117
  2. CERAZETTE (FRANCE) [Concomitant]
     Indication: CONTRACEPTION
     Route: 048
     Dates: start: 20130315
  3. DIFFU K [Concomitant]
     Indication: HYPOKALAEMIA
     Route: 048
     Dates: start: 20131117
  4. COBIMETINIB [Suspect]
     Indication: MALIGNANT MELANOMA
     Dosage: 60MG?LAST DOSE PRIOR TO SAE: 17/NOV/2013
     Route: 048
     Dates: start: 20131108, end: 20131117

REACTIONS (1)
  - Drug reaction with eosinophilia and systemic symptoms [Recovered/Resolved]
